FAERS Safety Report 12573042 (Version 1)
Quarter: 2016Q3

REPORT INFORMATION
  Report Type: Spontaneous
  Country: US (occurrence: None)
  Receive Date: 20160719
  Receipt Date: 20160719
  Transmission Date: 20161109
  Serious: Yes (Other)
  Sender: FDA-Public Use
  Company Number: None

PATIENT
  Age: 43 Year
  Sex: Female
  Weight: 64.86 kg

DRUGS (5)
  1. SALINE [Concomitant]
     Active Substance: SODIUM CHLORIDE
  2. BOTOX [Suspect]
     Active Substance: ONABOTULINUMTOXINA
     Indication: MIGRAINE
     Dates: start: 20160601, end: 20160601
  3. CORRUGATOR [Concomitant]
  4. TRAPEZIUS [Concomitant]
  5. PROCERUS [Concomitant]

REACTIONS (6)
  - Eyelid ptosis [None]
  - Visual acuity reduced [None]
  - Diplopia [None]
  - Neck pain [None]
  - Drug ineffective [None]
  - Photosensitivity reaction [None]

NARRATIVE: CASE EVENT DATE: 20160602
